FAERS Safety Report 4938274-0 (Version None)
Quarter: 2006Q1

REPORT INFORMATION
  Report Type: 
  Country: None (occurrence: None)
  Receive Date: 20060308
  Receipt Date: 20060308
  Transmission Date: 20060701
  Serious: No
  Sender: FDA-Public Use
  Company Number: None

PATIENT
  Age: 23 Year
  Sex: Female
  Weight: 90 kg

DRUGS (1)
  1. RISPERIDONE [Suspect]
     Dosage: 6 MG DAILY PO
     Route: 048

REACTIONS (1)
  - BLOOD PROLACTIN INCREASED [None]
